FAERS Safety Report 12870465 (Version 1)
Quarter: 2016Q4

REPORT INFORMATION
  Report Type: Spontaneous
  Country: US (occurrence: US)
  Receive Date: 20161020
  Receipt Date: 20161020
  Transmission Date: 20170207
  Serious: Yes (Disabling)
  Sender: FDA-Public Use
  Company Number: None

PATIENT
  Age: 64 Year
  Sex: Female
  Weight: 61.2 kg

DRUGS (9)
  1. ZANTAC [Concomitant]
     Active Substance: RANITIDINE HYDROCHLORIDE
  2. BOTOX [Suspect]
     Active Substance: ONABOTULINUMTOXINA
     Indication: MIGRAINE PROPHYLAXIS
     Route: 058
     Dates: start: 20160803
  3. MULTI VITAMIN [Concomitant]
     Active Substance: VITAMINS
  4. LOTRONEX [Concomitant]
     Active Substance: ALOSETRON HYDROCHLORIDE
  5. VITAMIN D [Concomitant]
     Active Substance: CHOLECALCIFEROL
  6. LOSARTAN. [Concomitant]
     Active Substance: LOSARTAN
  7. CALCIUM [Concomitant]
     Active Substance: CALCIUM
  8. COMPOUND HORMONES [Concomitant]
  9. FISH OIL [Concomitant]
     Active Substance: FISH OIL

REACTIONS (7)
  - Discomfort [None]
  - Neck pain [None]
  - Photosensitivity reaction [None]
  - Musculoskeletal pain [None]
  - Vision blurred [None]
  - Sleep disorder [None]
  - Pain [None]

NARRATIVE: CASE EVENT DATE: 20160803
